FAERS Safety Report 6569488-4 (Version None)
Quarter: 2010Q1

REPORT INFORMATION
  Report Type: 
  Country: None (occurrence: None)
  Receive Date: 20100204
  Receipt Date: 20100125
  Transmission Date: 20100710
  Serious: Yes (Death, Hospitalization, Other)
  Sender: FDA-Public Use
  Company Number: US-PFIZER INC-2009260309

PATIENT
  Sex: Female

DRUGS (1)
  1. SUTENT [Suspect]
     Indication: METASTATIC RENAL CELL CARCINOMA
     Dosage: 37.5 MG, 1X/DAY 4WEEKS ON 2 WKS OFF
     Route: 048
     Dates: start: 20090806

REACTIONS (16)
  - ASTHENIA [None]
  - BLOOD URINE PRESENT [None]
  - DEATH [None]
  - DECREASED APPETITE [None]
  - DEHYDRATION [None]
  - DIARRHOEA [None]
  - DYSPNOEA [None]
  - FAECES DISCOLOURED [None]
  - FATIGUE [None]
  - INTERNATIONAL NORMALISED RATIO DECREASED [None]
  - NAUSEA [None]
  - ORAL PAIN [None]
  - PERIPHERAL CIRCULATORY FAILURE [None]
  - TUMOUR HAEMORRHAGE [None]
  - VENOUS THROMBOSIS [None]
  - WEIGHT DECREASED [None]
